FAERS Safety Report 8844248 (Version 1)
Quarter: 2012Q4

REPORT INFORMATION
  Report Type: 
  Country: GB (occurrence: GB)
  Receive Date: 20121017
  Receipt Date: 20121017
  Transmission Date: 20130627
  Serious: Yes (Hospitalization)
  Sender: FDA-Public Use
  Company Number: GB-ACCORD-014955

PATIENT
  Age: 1 Year
  Sex: Male

DRUGS (2)
  1. FLUTICASONE PROPIONATE [Suspect]
     Indication: WHEEZING
     Dosage: Fluticasone 50 mcg (100 mcg, daily)
     Route: 065
  2. MONTELUKAST [Suspect]
     Indication: WHEEZING
     Dosage: 4 mcg, daily
     Route: 065

REACTIONS (2)
  - Wheezing [Unknown]
  - Disease recurrence [None]
